FAERS Safety Report 4534698-4 (Version None)
Quarter: 2004Q4

REPORT INFORMATION
  Report Type: 
  Country: None (occurrence: None)
  Receive Date: 20041214
  Receipt Date: 20040806
  Transmission Date: 20050328
  Serious: No
  Sender: FDA-Public Use
  Company Number: USA040874819

PATIENT
  Age: 51 Year
  Sex: Male
  Weight: 90 kg

DRUGS (3)
  1. CIALIS [Suspect]
     Indication: ERECTILE DYSFUNCTION
     Dosage: 20 MG
     Dates: start: 20040601
  2. AVANDA (ROSIGLITAZONE MALEATE) [Concomitant]
  3. ZOLOFT [Concomitant]

REACTIONS (1)
  - DRUG INEFFECTIVE [None]
